FAERS Safety Report 9386764 (Version 2)
Quarter: 2013Q3

REPORT INFORMATION
  Report Type: Spontaneous
  Country: US (occurrence: US)
  Receive Date: 20130708
  Receipt Date: 20130823
  Transmission Date: 20140515
  Serious: No
  Sender: FDA-Public Use
  Company Number: US-PFIZER INC-2013197299

PATIENT
  Age: 13 Year
  Sex: Male
  Weight: 43.1 kg

DRUGS (2)
  1. GENOTROPIN [Suspect]
     Indication: GROWTH RETARDATION
     Dosage: 1.8 MG, 1X/DAY
     Dates: start: 2009
  2. KAPVAY [Concomitant]
     Indication: TOURETTE^S DISORDER
     Dosage: 0.1 MG, 1X/DAY

REACTIONS (1)
  - Injection site pain [Unknown]
